FAERS Safety Report 13332659 (Version 1)
Quarter: 2017Q1

REPORT INFORMATION
  Report Type: Spontaneous
  Country: US (occurrence: US)
  Receive Date: 20170314
  Receipt Date: 20170314
  Transmission Date: 20170428
  Serious: No
  Sender: FDA-Public Use
  Company Number: None

PATIENT
  Age: 55 Year
  Sex: Female

DRUGS (1)
  1. NP THYROID 90 [Suspect]
     Active Substance: LEVOTHYROXINE\LIOTHYRONINE
     Indication: HYPOTHYROIDISM
     Route: 048

REACTIONS (5)
  - Product odour abnormal [None]
  - Drug ineffective [None]
  - Thyroid disorder [None]
  - Product quality issue [None]
  - Disease recurrence [None]

NARRATIVE: CASE EVENT DATE: 20170314
